FAERS Safety Report 13468846 (Version 1)
Quarter: 2017Q2

REPORT INFORMATION
  Report Type: Spontaneous
  Country: FR (occurrence: FR)
  Receive Date: 20170421
  Receipt Date: 20170421
  Transmission Date: 20170830
  Serious: Yes (Hospitalization, Other)
  Sender: FDA-Public Use
  Company Number: FR-BRISTOL-MYERS SQUIBB COMPANY-BMS-2017-034267

PATIENT
  Age: 72 Year
  Sex: Male

DRUGS (1)
  1. ELIQUIS [Suspect]
     Active Substance: APIXABAN
     Indication: CEREBROVASCULAR ACCIDENT PROPHYLAXIS
     Dosage: 5 MG, BID
     Route: 048
     Dates: end: 20170401

REACTIONS (5)
  - Therapeutic embolisation [Unknown]
  - Packed red blood cell transfusion [Unknown]
  - Haemorrhagic anaemia [Recovered/Resolved with Sequelae]
  - Transfusion [Unknown]
  - Renal haematoma [Unknown]

NARRATIVE: CASE EVENT DATE: 20170401
